FAERS Safety Report 6470128-3 (Version None)
Quarter: 2009Q4

REPORT INFORMATION
  Report Type: 
  Country: None (occurrence: None)
  Receive Date: 20091203
  Receipt Date: 20071207
  Transmission Date: 20100525
  Serious: Yes (Death)
  Sender: FDA-Public Use
  Company Number: TR-ELI_LILLY_AND_COMPANY-TR200712001702

PATIENT
  Age: 81 Year
  Sex: Female
  Weight: 55 kg

DRUGS (3)
  1. HUMALOG [Suspect]
     Indication: TYPE 2 DIABETES MELLITUS
     Dosage: 6 UNITS/MORNING AND 8 UNITS/NOON
     Route: 058
     Dates: start: 20071001
  2. HUMALOG [Suspect]
     Dosage: 8 IU, NOON
     Route: 058
     Dates: start: 20071001
  3. LANTUS [Concomitant]
     Indication: TYPE 2 DIABETES MELLITUS
     Dosage: 10 UNITS/EVENING
     Route: 058

REACTIONS (1)
  - DEATH [None]
